FAERS Safety Report 5814308-6 (Version None)
Quarter: 2008Q3

REPORT INFORMATION
  Report Type: 
  Country: None (occurrence: None)
  Receive Date: 20080711
  Receipt Date: 20080627
  Transmission Date: 20090109
  Serious: No
  Sender: FDA-Public Use
  Company Number: TPA2008A00997

PATIENT
  Sex: Female

DRUGS (11)
  1. ROZEREM [Suspect]
     Indication: INSOMNIA
     Dosage: 8 MG, QHS, PER ORAL; 16 MG, QHS, PER ORAL
     Route: 048
     Dates: start: 20060101, end: 20060101
  2. ROZEREM [Suspect]
     Indication: INSOMNIA
     Dosage: 8 MG, QHS, PER ORAL; 16 MG, QHS, PER ORAL
     Route: 048
     Dates: start: 20060101, end: 20060101
  3. ADDRERALL (DEXAMFETAMINE SULFATE, AMFETAMINE SULFATE, DEXAMFETAMINE SA [Concomitant]
  4. WELLBUTRIN [Concomitant]
  5. CLONAZEPAM [Concomitant]
  6. PROZAC [Concomitant]
  7. METFORMIN HCL [Concomitant]
  8. REGLAN [Concomitant]
  9. PIROLACTIN (ALL OTHER THERAPEUTIC PRODUCTS) [Concomitant]
  10. SEROQUEL (QUETIAPINE FURMARATE) [Concomitant]
  11. XANAX [Concomitant]

REACTIONS (2)
  - DRUG INEFFECTIVE [None]
  - FATIGUE [None]
